FAERS Safety Report 15056434 (Version 5)
Quarter: 2018Q3

REPORT INFORMATION
  Report Type: Report from Study
  Country: None (occurrence: GB)
  Receive Date: 20180622
  Receipt Date: 20180806
  Transmission Date: 20181010
  Serious: Yes (Hospitalization)
  Sender: FDA-Public Use
  Company Number: GB-ABBVIE-18K-167-2322047-00

PATIENT
  Age: 59 Year
  Sex: Male

DRUGS (3)
  1. DUODOPA [Suspect]
     Active Substance: CARBIDOPA\LEVODOPA
     Indication: PARKINSON^S DISEASE
     Dosage: 1 CASSETTE DAILY
     Route: 050
  2. DUODOPA [Suspect]
     Active Substance: CARBIDOPA\LEVODOPA
     Dosage: REDUCED THE CONTINUOUS RATE
     Route: 050
  3. DUODOPA [Suspect]
     Active Substance: CARBIDOPA\LEVODOPA
     Dosage: 1 CASSETTE DAILY?CONTINUOUS RATE DECREASED TO 3.0MLS
     Route: 050
     Dates: start: 20180707

REACTIONS (13)
  - Depressed mood [Not Recovered/Not Resolved]
  - Loss of personal independence in daily activities [Unknown]
  - Device issue [Unknown]
  - Gastrointestinal stoma complication [Unknown]
  - Sleep disorder [Unknown]
  - Dyskinesia [Unknown]
  - Musculoskeletal disorder [Unknown]
  - Stoma site infection [Unknown]
  - Tearfulness [Not Recovered/Not Resolved]
  - Fall [Not Recovered/Not Resolved]
  - Drug ineffective [Unknown]
  - Mobility decreased [Unknown]
  - Dyskinesia [Unknown]

NARRATIVE: CASE EVENT DATE: 2018
